FAERS Safety Report 4468346-9 (Version None)
Quarter: 2004Q4

REPORT INFORMATION
  Report Type: 
  Country: None (occurrence: None)
  Receive Date: 20041007
  Receipt Date: 20040930
  Transmission Date: 20050328
  Serious: Yes (Life-Threatening, Disabling)
  Sender: FDA-Public Use
  Company Number: US-MERCK-0410USA00003

PATIENT
  Age: 60 Year
  Sex: Female

DRUGS (4)
  1. ATENOLOL [Concomitant]
     Route: 065
  2. LOTENSIN [Concomitant]
     Route: 065
  3. LORAZEPAM [Concomitant]
     Route: 065
  4. VIOXX [Suspect]
     Indication: POST PROCEDURAL PAIN
     Route: 048
     Dates: start: 20040101, end: 20040901

REACTIONS (3)
  - ANXIETY [None]
  - BLOOD PRESSURE INCREASED [None]
  - NECK PAIN [None]
